FAERS Safety Report 10511921 (Version 1)
Quarter: 2014Q3

REPORT INFORMATION
  Report Type: Spontaneous
  Country: US (occurrence: None)
  Receive Date: 20140926
  Receipt Date: 20140926
  Transmission Date: 20150326
  Serious: No
  Sender: FDA-Public Use
  Company Number: 1000068432

PATIENT
  Age: 72 Year
  Sex: Female

DRUGS (3)
  1. COUMADIN SODIUM (WARFARIN SODIUM) [Concomitant]
  2. ESTROGEN (ESTRADIOL) (ESTRADIOL) [Concomitant]
  3. LINZESS [Suspect]
     Active Substance: LINACLOTIDE
     Indication: CONSTIPATION
     Route: 048
     Dates: start: 20140619, end: 2014

REACTIONS (7)
  - Flatulence [None]
  - Abdominal pain upper [None]
  - Abdominal distension [None]
  - Chills [None]
  - Diarrhoea [None]
  - Drug ineffective [None]
  - Nausea [None]

NARRATIVE: CASE EVENT DATE: 2014
